FAERS Safety Report 9481860 (Version 2)
Quarter: 2013Q3

REPORT INFORMATION
  Report Type: Spontaneous
  Country: US (occurrence: US)
  Receive Date: 20130828
  Receipt Date: 20130828
  Transmission Date: 20140515
  Serious: Yes (Other)
  Sender: FDA-Public Use
  Company Number: US-AMGEN-KDL127420

PATIENT
  Age: 57 Year
  Sex: Female

DRUGS (3)
  1. ENBREL [Suspect]
     Indication: RHEUMATOID ARTHRITIS
     Dosage: 50 MG, QWK
     Route: 058
     Dates: start: 20041201
  2. ENBREL [Suspect]
     Dosage: 50 MG, QWK
     Route: 058
     Dates: start: 20041201
  3. METHOTREXATE [Concomitant]
     Dosage: UNK UNK, QWK
     Route: 048
     Dates: start: 2000

REACTIONS (7)
  - Carcinoid tumour of the stomach [Recovered/Resolved]
  - Scleritis [Not Recovered/Not Resolved]
  - Ocular hyperaemia [Recovered/Resolved]
  - Nodule [Recovered/Resolved]
  - Eye disorder [Not Recovered/Not Resolved]
  - Eye pain [Recovered/Resolved]
  - Rash [Unknown]
